FAERS Safety Report 17789614 (Version 22)
Quarter: 2025Q2

REPORT INFORMATION
  Report Type: Report from Study
  Country: US (occurrence: US)
  Receive Date: 20200515
  Receipt Date: 20250619
  Transmission Date: 20250717
  Serious: Yes (Other)
  Sender: TAKEDA
  Company Number: US-SHIRE-US202016272

PATIENT
  Age: 34 Year
  Sex: Female
  Weight: 102 kg

DRUGS (58)
  1. HUMAN IMMUNOGLOBULIN G [Suspect]
     Active Substance: HUMAN IMMUNOGLOBULIN G
     Indication: IgG deficiency
     Dosage: 45 GRAM, Q4WEEKS
  2. ACETAMINOPHEN [Concomitant]
     Active Substance: ACETAMINOPHEN
     Indication: Pain
  3. ACETAMINOPHEN [Concomitant]
     Active Substance: ACETAMINOPHEN
     Indication: Fatigue
  4. EPINEPHRINE [Concomitant]
     Active Substance: EPINEPHRINE
  5. VITAMIN D3 [Concomitant]
     Active Substance: CHOLECALCIFEROL
  6. SINGULAIR [Concomitant]
     Active Substance: MONTELUKAST SODIUM
  7. SODIUM CHLORIDE [Concomitant]
     Active Substance: SODIUM CHLORIDE
  8. TIROSINT [Concomitant]
     Active Substance: LEVOTHYROXINE SODIUM
  9. XOLAIR [Concomitant]
     Active Substance: OMALIZUMAB
  10. ADVAIR HFA [Concomitant]
     Active Substance: FLUTICASONE PROPIONATE\SALMETEROL XINAFOATE
  11. SODIUM CHLORIDE [Concomitant]
     Active Substance: SODIUM CHLORIDE
  12. ESOMEPRAZOLE MAGNESIUM [Concomitant]
     Active Substance: ESOMEPRAZOLE MAGNESIUM
  13. LORAZEPAM [Concomitant]
     Active Substance: LORAZEPAM
  14. UNSPECIFIED INGREDIENT [Concomitant]
     Active Substance: UNSPECIFIED INGREDIENT
  15. ALBUTEROL SULFATE [Concomitant]
     Active Substance: ALBUTEROL SULFATE
  16. HERBALS\TURMERIC [Concomitant]
     Active Substance: HERBALS\TURMERIC
  17. LIDOCAINE [Concomitant]
     Active Substance: LIDOCAINE
  18. AZELASTINE [Concomitant]
     Active Substance: AZELASTINE
  19. BENTYL [Concomitant]
     Active Substance: DICYCLOMINE HYDROCHLORIDE
  20. FAMOTIDINE [Concomitant]
     Active Substance: FAMOTIDINE
  21. MOTEGRITY [Concomitant]
     Active Substance: PRUCALOPRIDE SUCCINATE
  22. PREVIDENT [Concomitant]
     Active Substance: SODIUM FLUORIDE
  23. DEXTROSE [Concomitant]
     Active Substance: DEXTROSE MONOHYDRATE
  24. DIPHENHYDRAMINE HYDROCHLORIDE [Concomitant]
     Active Substance: DIPHENHYDRAMINE HYDROCHLORIDE
  25. LIOTHYRONINE SODIUM [Concomitant]
     Active Substance: LIOTHYRONINE SODIUM
  26. MESTINON [Concomitant]
     Active Substance: PYRIDOSTIGMINE BROMIDE
  27. ONDANSETRON HYDROCHLORIDE [Concomitant]
     Active Substance: ONDANSETRON HYDROCHLORIDE
  28. ZYRTEC [Concomitant]
     Active Substance: CETIRIZINE HYDROCHLORIDE
  29. SOLU-CORTEF [Concomitant]
     Active Substance: HYDROCORTISONE SODIUM SUCCINATE
  30. SYNTHROID [Concomitant]
     Active Substance: LEVOTHYROXINE SODIUM
  31. LIOTHYRONINE [Concomitant]
     Active Substance: LIOTHYRONINE
  32. L-GLUTAMINE [Concomitant]
     Active Substance: GLUTAMINE
  33. PLAQUENIL [Concomitant]
     Active Substance: HYDROXYCHLOROQUINE SULFATE
  34. OMEPRAZOLE [Concomitant]
     Active Substance: OMEPRAZOLE
  35. DIPHENHYDRAMINE [Concomitant]
     Active Substance: DIPHENHYDRAMINE
     Indication: Pain
  36. DIPHENHYDRAMINE [Concomitant]
     Active Substance: DIPHENHYDRAMINE
     Indication: Fatigue
  37. HIZENTRA [Concomitant]
     Active Substance: HUMAN IMMUNOGLOBULIN G
  38. Lmx [Concomitant]
  39. SERTRALINE HYDROCHLORIDE [Concomitant]
     Active Substance: SERTRALINE HYDROCHLORIDE
  40. IBUPROFEN [Concomitant]
     Active Substance: IBUPROFEN
  41. LEVOTHYROXINE SODIUM [Concomitant]
     Active Substance: LEVOTHYROXINE SODIUM
  42. DICYCLOMINE HYDROCHLORIDE [Concomitant]
     Active Substance: DICYCLOMINE HYDROCHLORIDE
  43. GASTROCROM [Concomitant]
     Active Substance: CROMOLYN SODIUM
  44. AZELASTINE HYDROCHLORIDE [Concomitant]
     Active Substance: AZELASTINE HYDROCHLORIDE
  45. ALUMINUM CHLORIDE [Concomitant]
     Active Substance: ALUMINUM CHLORIDE
  46. CETIRIZINE HCL [Concomitant]
     Active Substance: CETIRIZINE HYDROCHLORIDE
  47. IPRATROPIUM BROMIDE [Concomitant]
     Active Substance: IPRATROPIUM BROMIDE
  48. HYDROMORPHONE [Concomitant]
     Active Substance: HYDROMORPHONE
  49. MORPHINE SULFATE [Concomitant]
     Active Substance: MORPHINE SULFATE
  50. BENZALKONIUM CHLORIDE [Concomitant]
     Active Substance: BENZALKONIUM CHLORIDE
  51. ALPRAZOLAM [Concomitant]
     Active Substance: ALPRAZOLAM
  52. MIRTAZAPINE [Concomitant]
     Active Substance: MIRTAZAPINE
  53. SULFAMETHOXAZOLE [Concomitant]
     Active Substance: SULFAMETHOXAZOLE
  54. CLINDAMYCIN [Concomitant]
     Active Substance: CLINDAMYCIN
  55. SULFAMERAZINE\TRIMETHOPRIM [Concomitant]
     Active Substance: SULFAMERAZINE\TRIMETHOPRIM
  56. MELOXICAM [Concomitant]
     Active Substance: MELOXICAM
  57. PROGESTERONE [Concomitant]
     Active Substance: PROGESTERONE
  58. COLESTIPOL HYDROCHLORIDE [Concomitant]
     Active Substance: COLESTIPOL HYDROCHLORIDE

REACTIONS (28)
  - Ovarian cyst ruptured [Unknown]
  - Infusion related hypersensitivity reaction [Unknown]
  - Infusion related reaction [Unknown]
  - Eczema [Unknown]
  - Infusion site discharge [Unknown]
  - Ear infection [Unknown]
  - Incorrect drug administration rate [Unknown]
  - COVID-19 [Recovered/Resolved]
  - Product dose omission issue [Unknown]
  - Dehydration [Unknown]
  - Illness [Unknown]
  - Bladder discomfort [Unknown]
  - Sinusitis [Unknown]
  - Feeling abnormal [Unknown]
  - Musculoskeletal stiffness [Unknown]
  - Swelling [Unknown]
  - Pain [Recovering/Resolving]
  - Hot flush [Unknown]
  - Flushing [Unknown]
  - Back pain [Unknown]
  - Abdominal pain [Unknown]
  - Chills [Unknown]
  - Vomiting [Unknown]
  - Migraine [Unknown]
  - Diarrhoea [Unknown]
  - Nausea [Unknown]
  - Fatigue [Unknown]
  - Headache [Recovering/Resolving]

NARRATIVE: CASE EVENT DATE: 20240717
